FAERS Safety Report 5443643-9 (Version None)
Quarter: 2007Q3

REPORT INFORMATION
  Report Type: 
  Country: None (occurrence: None)
  Receive Date: 20070905
  Receipt Date: 20070829
  Transmission Date: 20080115
  Serious: Yes (Other)
  Sender: FDA-Public Use
  Company Number: TH-ASTRAZENECA-2007AP05413

PATIENT
  Age: 37 Year
  Sex: Male

DRUGS (1)
  1. MARCAIN SPINAL HEAVY  0.5% [Suspect]
     Indication: ANAESTHETIC PREMEDICATION
     Route: 037
     Dates: start: 20070823, end: 20070823

REACTIONS (2)
  - BRADYCARDIA [None]
  - GAZE PALSY [None]
